FAERS Safety Report 8957224 (Version 1)
Quarter: 2012Q4

REPORT INFORMATION
  Report Type: Report from Study
  Country: FR (occurrence: FR)
  Receive Date: 20121211
  Receipt Date: 20121211
  Transmission Date: 20130627
  Serious: Yes (Death, Life-Threatening, Hospitalization)
  Sender: FDA-Public Use
  Company Number: FR-ROCHE-670465

PATIENT
  Age: 57 None
  Sex: Female

DRUGS (6)
  1. MABTHERA [Suspect]
     Indication: RHEUMATOID ARTHRITIS
     Dosage: FREQUENCY: RECEIVED 4 CYCLES, DOSE 1 GRAMX2.
     Route: 042
     Dates: start: 200611, end: 200908
  2. CORTANCYL [Concomitant]
  3. TRIATEC [Concomitant]
  4. XANAX [Concomitant]
  5. METFORMIN [Concomitant]
  6. NOVOMIX [Concomitant]

REACTIONS (4)
  - Metastatic neoplasm [Not Recovered/Not Resolved]
  - Cholecystitis acute [Recovered/Resolved]
  - Pancreatitis acute [Recovered/Resolved]
  - Adenocarcinoma pancreas [Fatal]
